FAERS Safety Report 24697701 (Version 1)
Quarter: 2024Q4

REPORT INFORMATION
  Report Type: Spontaneous
  Country: TW (occurrence: TW)
  Receive Date: 20241204
  Receipt Date: 20241204
  Transmission Date: 20250114
  Serious: Yes (Other)
  Sender: UCB
  Company Number: TW-UCBSA-2024062239

PATIENT
  Age: 63 Year
  Sex: Male

DRUGS (4)
  1. NEUPRO [Suspect]
     Active Substance: ROTIGOTINE
     Indication: Product used for unknown indication
     Dosage: 1 DOSAGE FORM, ONCE DAILY (QD)
  2. BENSERAZIDE HYDROCHLORIDE\LEVODOPA [Concomitant]
     Active Substance: BENSERAZIDE HYDROCHLORIDE\LEVODOPA
     Indication: Product used for unknown indication
     Dosage: (200/50) 1/2  2X/DAY (BID)
  3. ARTEMETHER [Concomitant]
     Active Substance: ARTEMETHER
     Indication: Product used for unknown indication
     Dosage: (2) 1, 2X/DAY (BID)
  4. ARTEMETHER [Concomitant]
     Active Substance: ARTEMETHER
     Dosage: 2) 0.5

REACTIONS (3)
  - Cervix carcinoma [Recovered/Resolved]
  - Clumsiness [Unknown]
  - Tremor [Unknown]

NARRATIVE: CASE EVENT DATE: 20230411
